FAERS Safety Report 5235468-4 (Version None)
Quarter: 2007Q1

REPORT INFORMATION
  Report Type: 
  Country: None (occurrence: None)
  Receive Date: 20070212
  Receipt Date: 20070130
  Transmission Date: 20070707
  Serious: Yes (Other)
  Sender: FDA-Public Use
  Company Number: PHBS2007BR00881

PATIENT
  Age: 20 Year
  Sex: Female
  Weight: 57 kg

DRUGS (2)
  1. TRILEPTAL [Suspect]
     Indication: DEPRESSION
     Dosage: 300 MG
     Route: 048
     Dates: start: 20061001
  2. TRILEPTAL [Suspect]
     Dosage: 600 MG, QD
     Route: 048
     Dates: start: 20061214

REACTIONS (9)
  - CYANOSIS [None]
  - DEPRESSION [None]
  - DIPLOPIA [None]
  - DIZZINESS [None]
  - DYSSTASIA [None]
  - INSOMNIA [None]
  - MALAISE [None]
  - SYNCOPE [None]
  - THERAPEUTIC AGENT TOXICITY [None]
